FAERS Safety Report 20465422 (Version 2)
Quarter: 2022Q2

REPORT INFORMATION
  Report Type: Spontaneous
  Country: IT (occurrence: IT)
  Receive Date: 20220212
  Receipt Date: 20220503
  Transmission Date: 20220721
  Serious: Yes (Other)
  Sender: FDA-Public Use
  Company Number: IT-CELLTRION INC.-2021IT018893

PATIENT

DRUGS (4)
  1. INFLIXIMAB [Suspect]
     Active Substance: INFLIXIMAB
     Indication: Takayasu^s arteritis
     Dosage: 5 MG/KG AT 0, 2, AND 6 WEEKS, AND THEN EVERY 6 WEEKS
     Route: 042
  2. INFLIXIMAB [Suspect]
     Active Substance: INFLIXIMAB
     Dosage: 7 MG/KG EVERY 6 WEEKS
     Route: 042
  3. PREDNISONE [Concomitant]
     Active Substance: PREDNISONE
     Indication: Takayasu^s arteritis
     Dosage: 5 MG, DAILY
  4. METHOTREXATE [Concomitant]
     Active Substance: METHOTREXATE
     Indication: Takayasu^s arteritis
     Dosage: 20 MG, WEEKLY

REACTIONS (3)
  - Prosthetic valve endocarditis [Recovered/Resolved]
  - Drug effective for unapproved indication [Unknown]
  - Off label use [Unknown]
